FAERS Safety Report 5874575-X (Version None)
Quarter: 2008Q3

REPORT INFORMATION
  Report Type: 
  Country: None (occurrence: None)
  Receive Date: 20080905
  Receipt Date: 20080905
  Transmission Date: 20090109
  Serious: Yes (Life-Threatening, Other)
  Sender: FDA-Public Use
  Company Number: None

PATIENT
  Age: 27 Year
  Sex: Female
  Weight: 49.8957 kg

DRUGS (1)
  1. LAMOTRIGINE [Suspect]
     Indication: BIPOLAR II DISORDER
     Dosage: TWO -2- BY MOUTH AM
     Route: 048
     Dates: start: 20080824, end: 20080828

REACTIONS (7)
  - APHASIA [None]
  - BLINDNESS [None]
  - MIGRAINE [None]
  - PERIORBITAL HAEMATOMA [None]
  - PHARMACEUTICAL PRODUCT COMPLAINT [None]
  - SYNCOPE [None]
  - VOMITING PROJECTILE [None]
